FAERS Safety Report 5484249-5 (Version None)
Quarter: 2007Q4

REPORT INFORMATION
  Report Type: 
  Country: None (occurrence: None)
  Receive Date: 20071010
  Receipt Date: 20070926
  Transmission Date: 20080405
  Serious: Yes (Other)
  Sender: FDA-Public Use
  Company Number: 2007BI020566

PATIENT
  Sex: Female

DRUGS (1)
  1. AVONEX [Suspect]
     Indication: MULTIPLE SCLEROSIS
     Dosage: IM
     Route: 030
     Dates: start: 20000901

REACTIONS (4)
  - ANKYLOSING SPONDYLITIS [None]
  - FOOT FRACTURE [None]
  - MOBILITY DECREASED [None]
  - PAIN [None]
